FAERS Safety Report 8905599 (Version 1)
Quarter: 2012Q4

REPORT INFORMATION
  Report Type: 
  Country: US (occurrence: US)
  Receive Date: 20121113
  Receipt Date: 20121113
  Transmission Date: 20130627
  Serious: Yes (Death)
  Sender: FDA-Public Use
  Company Number: US-MILLENNIUM PHARMACEUTICALS, INC.-2012-07897

PATIENT

DRUGS (3)
  1. VELCADE [Suspect]
     Indication: MULTIPLE MYELOMA
     Dosage: 1.3 mg/m2, qd
     Route: 040
  2. BUSULFAN [Suspect]
     Indication: MULTIPLE MYELOMA
     Dosage: 0.8 mg/kg, qd
     Route: 042
  3. BUSULFAN [Suspect]
     Dosage: UNK

REACTIONS (1)
  - Lung disorder [Fatal]
